FAERS Safety Report 10467441 (Version 1)
Quarter: 2014Q3

REPORT INFORMATION
  Report Type: Report from Study
  Country: US (occurrence: US)
  Receive Date: 20140922
  Receipt Date: 20140922
  Transmission Date: 20150326
  Serious: Yes (Other)
  Sender: FDA-Public Use
  Company Number: US-BRISTOL-MYERS SQUIBB COMPANY-21381694

PATIENT
  Age: 64 Year
  Sex: Male
  Weight: 97.5 kg

DRUGS (2)
  1. CELEBREX [Concomitant]
     Active Substance: CELECOXIB
  2. ORENCIA [Suspect]
     Active Substance: ABATACEPT
     Indication: RHEUMATOID ARTHRITIS
     Dosage: LAST INFUSION ON 03SEP2014
     Route: 042
     Dates: start: 201405

REACTIONS (6)
  - Pain [Unknown]
  - Dizziness [Unknown]
  - Loss of consciousness [Unknown]
  - Multiple injuries [Unknown]
  - Dysarthria [Unknown]
  - Contusion [Unknown]

NARRATIVE: CASE EVENT DATE: 2014
